FAERS Safety Report 15516772 (Version 1)
Quarter: 2018Q4

REPORT INFORMATION
  Report Type: Other
  Country: NL (occurrence: NL)
  Receive Date: 20181017
  Receipt Date: 20181017
  Transmission Date: 20190205
  Serious: Yes (Life-Threatening)
  Sender: FDA-Public Use
  Company Number: NL-APOTEX-2018AP022904

PATIENT
  Sex: Female
  Weight: 95 kg

DRUGS (1)
  1. PERINDOPRIL [Suspect]
     Active Substance: PERINDOPRIL
     Indication: HYPERTENSION
     Dosage: 1 DF, QD (1DD1)
     Route: 065
     Dates: start: 20180201, end: 20180205

REACTIONS (1)
  - Blood pressure increased [Recovered/Resolved]
